FAERS Safety Report 12873441 (Version 2)
Quarter: 2016Q4

REPORT INFORMATION
  Report Type: Spontaneous
  Country: US (occurrence: US)
  Receive Date: 20161021
  Receipt Date: 20161222
  Transmission Date: 20170207
  Serious: Yes (Other)
  Sender: FDA-Public Use
  Company Number: US-BIOGEN-2016BI00305739

PATIENT
  Sex: Female

DRUGS (1)
  1. TYSABRI [Suspect]
     Active Substance: NATALIZUMAB
     Indication: MULTIPLE SCLEROSIS
     Route: 065
     Dates: start: 201308, end: 201604

REACTIONS (2)
  - Genital herpes simplex [Unknown]
  - Vulvovaginal candidiasis [Unknown]
